FAERS Safety Report 6092641-3 (Version None)
Quarter: 2009Q1

REPORT INFORMATION
  Report Type: 
  Country: None (occurrence: None)
  Receive Date: 20090225
  Receipt Date: 20090216
  Transmission Date: 20090719
  Serious: Yes (Other)
  Sender: FDA-Public Use
  Company Number: US-ELI_LILLY_AND_COMPANY-US200902004181

PATIENT
  Sex: Male

DRUGS (3)
  1. STRATTERA [Suspect]
     Indication: ATTENTION DEFICIT/HYPERACTIVITY DISORDER
     Dosage: 100 MG, DAILY (1/D)
     Route: 065
     Dates: start: 20040101
  2. STRATTERA [Suspect]
     Dosage: 60 MG, DAILY (1/D)
     Route: 065
  3. STRATTERA [Suspect]
     Dosage: 60 MG, DAILY (1/D)
     Route: 065

REACTIONS (6)
  - ARRHYTHMIA [None]
  - CONDUCTION DISORDER [None]
  - DIZZINESS [None]
  - HYPERTENSION [None]
  - LOSS OF CONSCIOUSNESS [None]
  - NAUSEA [None]
